FAERS Safety Report 8977976 (Version 5)
Quarter: 2015Q1

REPORT INFORMATION
  Report Type: Spontaneous
  Country: US (occurrence: US)
  Receive Date: 20121219
  Receipt Date: 20150206
  Transmission Date: 20150721
  Serious: Yes (Hospitalization, Disabling, Other)
  Sender: FDA-Public Use
  Company Number: US-009507513-1212USA006908

PATIENT
  Sex: Female
  Weight: 68.93 kg

DRUGS (3)
  1. FOSAMAX [Suspect]
     Active Substance: ALENDRONATE SODIUM
     Indication: OSTEOPOROSIS
     Dosage: 10 MG, QD
     Route: 048
     Dates: start: 200007
  2. ALENDRONATE SODIUM. [Suspect]
     Active Substance: ALENDRONATE SODIUM
     Indication: OSTEOPOROSIS
     Dosage: 70 MG, QW
     Route: 048
     Dates: start: 200802, end: 201101
  3. FOSAMAX [Suspect]
     Active Substance: ALENDRONATE SODIUM
     Dosage: 70 MG, UNK
     Route: 048
     Dates: start: 200103, end: 200802

REACTIONS (33)
  - Intramedullary rod insertion [Unknown]
  - Dental caries [Unknown]
  - Foot deformity [Unknown]
  - Nephrolithiasis [Unknown]
  - Back disorder [Not Recovered/Not Resolved]
  - Tooth loss [Unknown]
  - Hypertension [Unknown]
  - Carpal tunnel syndrome [Unknown]
  - Adverse event [Unknown]
  - Senile osteoporosis [Recovering/Resolving]
  - Arteriosclerosis [Unknown]
  - Osteoarthritis [Unknown]
  - Anaemia [Unknown]
  - Measles [Unknown]
  - Alopecia [Unknown]
  - Fibromyalgia [Unknown]
  - Femur fracture [Recovering/Resolving]
  - Rib fracture [Recovering/Resolving]
  - Thoracic vertebral fracture [Unknown]
  - Nodal osteoarthritis [Unknown]
  - Sinusitis [Unknown]
  - Intervertebral disc degeneration [Unknown]
  - Low turnover osteopathy [Unknown]
  - Blood cholesterol increased [Unknown]
  - Body height decreased [Unknown]
  - Osteoporosis postmenopausal [Unknown]
  - Hyperthyroidism [Unknown]
  - Femur fracture [Recovered/Resolved]
  - Vitamin D deficiency [Unknown]
  - Osteopenia [Unknown]
  - Transaminases increased [Recovered/Resolved]
  - Attention deficit/hyperactivity disorder [Unknown]
  - Insomnia [Unknown]

NARRATIVE: CASE EVENT DATE: 2000
